FAERS Safety Report 22333985 (Version 1)
Quarter: 2023Q2

REPORT INFORMATION
  Report Type: Spontaneous
  Country: US (occurrence: US)
  Receive Date: 20230517
  Receipt Date: 20230517
  Transmission Date: 20230722
  Serious: No
  Sender: FDA-Public Use
  Company Number: US-MYLANLABS-2023M1046245

PATIENT
  Age: 57 Year
  Sex: Female

DRUGS (1)
  1. WIXELA INHUB [Suspect]
     Active Substance: FLUTICASONE PROPIONATE\SALMETEROL XINAFOATE
     Indication: Product used for unknown indication
     Dosage: UNK (500/50 MCG)
     Route: 055

REACTIONS (3)
  - Device use issue [Unknown]
  - Device mechanical issue [Unknown]
  - Device end of service [Unknown]

NARRATIVE: CASE EVENT DATE: 20230201
